FAERS Safety Report 7918706-6 (Version None)
Quarter: 2011Q4

REPORT INFORMATION
  Report Type: 
  Country: None (occurrence: None)
  Receive Date: 20111116
  Receipt Date: 20111108
  Transmission Date: 20120403
  Serious: Yes (Other)
  Sender: FDA-Public Use
  Company Number: BR-ELI_LILLY_AND_COMPANY-BR201111002538

PATIENT
  Age: 39 Year
  Sex: Male

DRUGS (3)
  1. CIALIS [Suspect]
     Indication: ERECTILE DYSFUNCTION
     Dosage: UNK UNK, UNKNOWN
     Route: 065
  2. CIALIS [Suspect]
     Dosage: 20 MG, UNKNOWN
     Route: 065
  3. ATROPINE OPHTHALMIC [Concomitant]
     Indication: GLAUCOMA
     Dosage: UNK, UNKNOWN
     Route: 065

REACTIONS (4)
  - EYE HAEMORRHAGE [None]
  - INTENTIONAL DRUG MISUSE [None]
  - CONJUNCTIVAL HYPERAEMIA [None]
  - EYE SWELLING [None]
